FAERS Safety Report 6122717-3 (Version None)
Quarter: 2009Q1

REPORT INFORMATION
  Report Type: 
  Country: None (occurrence: None)
  Receive Date: 20090318
  Receipt Date: 20090311
  Transmission Date: 20090719
  Serious: Yes (Hospitalization)
  Sender: FDA-Public Use
  Company Number: PHHY2009IT09213

PATIENT

DRUGS (8)
  1. BASILIXIMAB [Interacting]
     Indication: LIVER TRANSPLANT
     Dosage: 2 MG/KG
  2. BASILIXIMAB [Interacting]
     Indication: IMMUNOSUPPRESSION
  3. METHYLPREDNISOLONE 4MG TAB [Suspect]
     Dosage: 500 MG
  4. TACROLIMUS [Interacting]
     Indication: IMMUNOSUPPRESSION
     Route: 048
  5. PREDNISOLONE [Suspect]
     Dosage: 20 MG, QD
  6. HEPARIN [Concomitant]
     Indication: THROMBOSIS PROPHYLAXIS
  7. ACETYLSALICYLIC ACID [Concomitant]
     Indication: THROMBOSIS PROPHYLAXIS
  8. SIROLIMUS [Concomitant]

REACTIONS (13)
  - ASTHENIA [None]
  - ATAXIA [None]
  - BRAIN OEDEMA [None]
  - CEREBRAL THROMBOSIS [None]
  - CONGENITAL CEREBROVASCULAR ANOMALY [None]
  - CONVULSION [None]
  - DRUG INTERACTION [None]
  - DRUG LEVEL INCREASED [None]
  - HEADACHE [None]
  - HYPOAESTHESIA [None]
  - NAUSEA [None]
  - VASCULAR ANOMALY [None]
  - VOMITING [None]
